FAERS Safety Report 24217955 (Version 1)
Quarter: 2024Q3

REPORT INFORMATION
  Report Type: Spontaneous
  Country: PL (occurrence: PL)
  Receive Date: 20240816
  Receipt Date: 20240816
  Transmission Date: 20241016
  Serious: Yes (Death, Other)
  Sender: SANOFI AVENTIS
  Company Number: None

PATIENT
  Age: 71 Year
  Sex: Male
  Weight: 70 kg

DRUGS (5)
  1. ENOXAPARIN SODIUM [Suspect]
     Active Substance: ENOXAPARIN SODIUM
     Indication: Peripheral arterial occlusive disease
     Dosage: 40 MG, QD
     Route: 058
  2. PIROXICAM [Suspect]
     Active Substance: PIROXICAM
     Indication: Product used for unknown indication
     Dosage: 20 MG, QD
     Route: 048
     Dates: start: 20240708, end: 20240711
  3. ATORVASTATIN CALCIUM [Concomitant]
     Active Substance: ATORVASTATIN CALCIUM
     Dosage: 40 MG, QD (USED CHRONICALLY)
     Route: 048
  4. DIGOXIN TEVA [Concomitant]
     Dosage: 250 UG, QD (USED CHRONICALLY)
     Route: 048
  5. METOPROLOL SUCCINATE [Concomitant]
     Active Substance: METOPROLOL SUCCINATE
     Dosage: 142.5 MG, QD (USED CHRONICALLY)
     Route: 048

REACTIONS (3)
  - Condition aggravated [Fatal]
  - Cardiac arrest [Fatal]
  - Retroperitoneal haematoma [Fatal]

NARRATIVE: CASE EVENT DATE: 20240714
